FAERS Safety Report 18646391 (Version 1)
Quarter: 2020Q4

REPORT INFORMATION
  Report Type: Other
  Country: US (occurrence: US)
  Receive Date: 20201221
  Receipt Date: 20201221
  Transmission Date: 20210114
  Serious: No
  Sender: FDA-Public Use
  Company Number: US-ACORDA-ACO_166624_2020

PATIENT
  Sex: Male

DRUGS (8)
  1. INBRIJA [Suspect]
     Active Substance: LEVODOPA
     Indication: PARKINSON^S DISEASE
  2. WIXELA INHUB [Concomitant]
     Active Substance: FLUTICASONE PROPIONATE\SALMETEROL XINAFOATE
     Indication: PRODUCT USED FOR UNKNOWN INDICATION
     Dosage: 250-50MCG/PUFF, ONE PUFF TWO TIMES A DAY
     Route: 065
  3. PROSCAR [Concomitant]
     Active Substance: FINASTERIDE
     Indication: PRODUCT USED FOR UNKNOWN INDICATION
     Dosage: 5 MILLIGRAM, QD
     Route: 065
  4. ZOLOFT [Concomitant]
     Active Substance: SERTRALINE HYDROCHLORIDE
     Indication: PRODUCT USED FOR UNKNOWN INDICATION
     Dosage: 25 MILLIGRAM, BID
     Route: 065
  5. HYZAAR [Concomitant]
     Active Substance: HYDROCHLOROTHIAZIDE\LOSARTAN POTASSIUM
     Indication: PRODUCT USED FOR UNKNOWN INDICATION
     Dosage: 50-12.5MG: ONE TABLET DAILY
     Route: 048
  6. INBRIJA [Suspect]
     Active Substance: LEVODOPA
     Indication: ON AND OFF PHENOMENON
     Dosage: 84 MILLIGRAM, 2 CAPSULES AS NEEDED (NOT TO EXCEED 5 DOSES A DAY)
     Dates: start: 20201007
  7. SINEMET [Concomitant]
     Active Substance: CARBIDOPA\LEVODOPA
     Indication: PRODUCT USED FOR UNKNOWN INDICATION
     Dosage: 25-100MG: TWO TABLETS FOUR TIMES A DAY
     Route: 065
  8. NASONEX [Concomitant]
     Active Substance: MOMETASONE FUROATE
     Indication: PRODUCT USED FOR UNKNOWN INDICATION
     Dosage: 550 MCG NASAL SPRAY: 2 SPRAY IN EACH NOSTRIL DAILY
     Route: 065

REACTIONS (8)
  - Skin infection [Unknown]
  - Therapeutic product effect variable [Unknown]
  - Fatigue [Unknown]
  - Device issue [Unknown]
  - Product residue present [Unknown]
  - Rhinorrhoea [Unknown]
  - Somnolence [Unknown]
  - Cough [Unknown]
